FAERS Safety Report 10574801 (Version 5)
Quarter: 2016Q4

REPORT INFORMATION
  Report Type: Spontaneous
  Country: US (occurrence: US)
  Receive Date: 20141110
  Receipt Date: 20161101
  Transmission Date: 20170206
  Serious: Yes (Hospitalization, Other)
  Sender: FDA-Public Use
  Company Number: US-EXELIXIS-CABO-13003768

PATIENT
  Sex: Male
  Weight: 85 kg

DRUGS (6)
  1. COMETRIQ [Suspect]
     Active Substance: CABOZANTINIB S-MALATE
     Indication: THYROID CANCER
     Dosage: 140 MG, QD
     Route: 048
     Dates: start: 20131121, end: 20140616
  2. MULTIVITAMIN [Concomitant]
     Active Substance: VITAMINS
  3. BENTYL [Concomitant]
     Active Substance: DICYCLOMINE HYDROCHLORIDE
  4. ZONISAMIDE. [Concomitant]
     Active Substance: ZONISAMIDE
  5. COMETRIQ [Suspect]
     Active Substance: CABOZANTINIB S-MALATE
     Dosage: 100 MG, QD
     Route: 048
     Dates: start: 20140617, end: 201501
  6. COMETRIQ [Suspect]
     Active Substance: CABOZANTINIB S-MALATE
     Dosage: 100 MG, QD
     Route: 048

REACTIONS (10)
  - Dementia [Not Recovered/Not Resolved]
  - Stomatitis [Unknown]
  - Seizure [Unknown]
  - Oral mucosal blistering [Unknown]
  - Thought blocking [Unknown]
  - Abdominal pain upper [Unknown]
  - Pain [Unknown]
  - Back pain [Unknown]
  - Fall [Unknown]
  - Hypotension [Unknown]
